FAERS Safety Report 21099308 (Version 1)
Quarter: 2022Q3

REPORT INFORMATION
  Report Type: Spontaneous
  Country: IT (occurrence: IT)
  Receive Date: 20220719
  Receipt Date: 20220719
  Transmission Date: 20221026
  Serious: Yes (Other)
  Sender: FDA-Public Use
  Company Number: IT-GE HEALTHCARE-2022CSU004756

PATIENT
  Age: 8 Year
  Sex: Male

DRUGS (2)
  1. GADOLINIUM [Suspect]
     Active Substance: GADOLINIUM
     Indication: Magnetic resonance imaging
     Dosage: MULTIPLE TIMES
     Route: 042
  2. GADOLINIUM [Suspect]
     Active Substance: GADOLINIUM
     Indication: Ischaemic stroke

REACTIONS (1)
  - Nephrogenic systemic fibrosis [Unknown]
